FAERS Safety Report 4320457-4 (Version None)
Quarter: 2004Q1

REPORT INFORMATION
  Report Type: 
  Country: None (occurrence: None)
  Receive Date: 20040319
  Receipt Date: 20040319
  Transmission Date: 20041129
  Serious: Yes (Other)
  Sender: FDA-Public Use
  Company Number: None

PATIENT
  Age: 64 Year
  Sex: Male

DRUGS (4)
  1. LEVOFLOXACIN [Suspect]
     Indication: PNEUMONIA ASPIRATION
     Dosage: 250 MG Q24H INTRAVENOUS
     Route: 042
     Dates: start: 20040219, end: 20040219
  2. CARBAMAZEPINE [Concomitant]
  3. CEFTAZIDIME [Concomitant]
  4. VANCOMYCIN HYDROCHLORIDE [Concomitant]

REACTIONS (2)
  - CONDITION AGGRAVATED [None]
  - CONVULSION [None]
